FAERS Safety Report 5987274-0 (Version None)
Quarter: 2008Q4

REPORT INFORMATION
  Report Type: 
  Country: None (occurrence: None)
  Receive Date: 20081209
  Receipt Date: 20081202
  Transmission Date: 20090506
  Serious: Yes (Other)
  Sender: FDA-Public Use
  Company Number: US-ELI_LILLY_AND_COMPANY-US200812000701

PATIENT
  Sex: Male

DRUGS (15)
  1. BYETTA [Suspect]
     Indication: DIABETES MELLITUS INADEQUATE CONTROL
     Dosage: 10 UG, UNKNOWN
     Dates: start: 20060601
  2. LANTUS [Concomitant]
     Dosage: 45 U, UNK
  3. POTASSIUM CHLORIDE [Concomitant]
     Dosage: UNK, UNKNOWN
  4. DEMADEX [Concomitant]
     Dosage: 40 MG, DAILY (1/D)
  5. NEURONTIN [Concomitant]
     Dosage: 700 MG, DAILY (1/D)
  6. PIROXICAM [Concomitant]
     Dosage: 20 MG, UNKNOWN
  7. TOPROL-XL [Concomitant]
     Dosage: 50 MG, UNKNOWN
  8. LISINOPRIL [Concomitant]
     Dosage: 5 MG, UNKNOWN
  9. CRESTOR [Concomitant]
     Dosage: 10 MG, UNKNOWN
  10. CLARINEX [Concomitant]
     Dosage: UNK, UNKNOWN
  11. ACIPHEX [Concomitant]
     Dosage: UNK, UNKNOWN
  12. NASACORT [Concomitant]
     Dosage: UNK, UNKNOWN
  13. ULTRACET [Concomitant]
     Dosage: UNK, UNKNOWN
  14. WELLBUTRIN [Concomitant]
     Dosage: 200 MG, DAILY (1/D)
  15. ATIVAN [Concomitant]
     Dosage: 3 MG, DAILY (1/D)

REACTIONS (3)
  - HIP ARTHROPLASTY [None]
  - KNEE ARTHROPLASTY [None]
  - SURGERY [None]
